FAERS Safety Report 23771312 (Version 1)
Quarter: 2024Q2

REPORT INFORMATION
  Report Type: Other
  Country: US (occurrence: US)
  Receive Date: 20240423
  Receipt Date: 20240423
  Transmission Date: 20240716
  Serious: Yes (Other)
  Sender: FDA-Public Use
  Company Number: US-BELUSA-2024BELREG0034

PATIENT

DRUGS (1)
  1. FOSAPREPITANT DIMEGLUMINE [Suspect]
     Active Substance: FOSAPREPITANT DIMEGLUMINE
     Indication: Nausea
     Route: 065
     Dates: start: 20231107, end: 202311

REACTIONS (4)
  - Anaphylactic reaction [Recovered/Resolved]
  - Product formulation issue [Recovered/Resolved]
  - Suspected product quality issue [Recovered/Resolved]
  - Infusion related reaction [Recovered/Resolved]

NARRATIVE: CASE EVENT DATE: 20231107
